FAERS Safety Report 25603831 (Version 1)
Quarter: 2025Q3

REPORT INFORMATION
  Report Type: Spontaneous
  Country: US (occurrence: US)
  Receive Date: 20250725
  Receipt Date: 20250725
  Transmission Date: 20251020
  Serious: No
  Sender: CIPLA
  Company Number: US-CIPLA LTD.-2025US09237

PATIENT

DRUGS (24)
  1. LENALIDOMIDE [Suspect]
     Active Substance: LENALIDOMIDE
     Indication: Plasma cell myeloma
     Dosage: 5 MILLIGRAM, QD (14/21 DAYS)
     Route: 048
     Dates: start: 20250121
  2. LENALIDOMIDE [Suspect]
     Active Substance: LENALIDOMIDE
     Dosage: 5 MILLIGRAM, QD (14 DAYS ON, 7 DAYS OFF OF EACH 21 DAY CYCLE)
     Route: 048
     Dates: start: 20250225
  3. LENALIDOMIDE [Suspect]
     Active Substance: LENALIDOMIDE
     Dosage: 5 MILLIGRAM, QD (14 DAYS ON, 7 DAYS OFF OF EACH 21 DAY CYCLE)
     Route: 048
     Dates: start: 20250313
  4. LENALIDOMIDE [Suspect]
     Active Substance: LENALIDOMIDE
     Dosage: 5 MILLIGRAM, QD (14 DAYS ON, 7 DAYS OFF OF EACH 21 DAY CYCLE)
     Route: 048
     Dates: start: 20250506
  5. LENALIDOMIDE [Suspect]
     Active Substance: LENALIDOMIDE
     Dosage: 5 MILLIGRAM, QD (14 DAYS ON, 7 DAYS OFF OF EACH 21 DAY CYCLE)
     Route: 048
     Dates: start: 20250527
  6. LENALIDOMIDE [Suspect]
     Active Substance: LENALIDOMIDE
     Dosage: 5 MILLIGRAM, QD (14 DAYS ON, 7 DAYS OFF OF EACH 21 DAY CYCLE)
     Route: 048
     Dates: start: 20250616
  7. LENALIDOMIDE [Suspect]
     Active Substance: LENALIDOMIDE
     Dosage: 5 MILLIGRAM, QD (14 DAYS ON, 7 DAYS OFF OF EACH 21 DAY CYCLE)
     Route: 048
     Dates: start: 20250617
  8. LENALIDOMIDE [Suspect]
     Active Substance: LENALIDOMIDE
     Dosage: 5 MILLIGRAM, QD (14 DAYS ON, 7 DAYS OFF OF EACH 21 DAY CYCLE)
     Route: 048
     Dates: start: 20250708
  9. LENALIDOMIDE [Concomitant]
     Active Substance: LENALIDOMIDE
     Indication: Product used for unknown indication
     Dosage: 5 MILLIGRAM, QD (FOR 14 DAYS ON, 7 DAYS OFF OF EACH 21 DAY CYCLE)
     Route: 048
  10. LENALIDOMIDE [Concomitant]
     Active Substance: LENALIDOMIDE
     Dosage: 5 MILLIGRAM, QD (FOR 14 DAYS ON, 7 DAYS OFF OF EACH 21 DAY CYCLE)
     Route: 048
     Dates: start: 20250711
  11. LENALIDOMIDE DR. REDDY^S [Concomitant]
     Indication: Product used for unknown indication
     Dosage: 10 MILLIGRAM, QD (FOR 14 DAYS ON, 7 DAYS OFF OF EACH 21 DAY CYCLE)
     Route: 048
     Dates: start: 20250116
  12. LENALIDOMIDE DR. REDDY^S [Concomitant]
     Dosage: 10 MILLIGRAM, QD (FOR 14 DAYS)
     Route: 048
     Dates: start: 20250205
  13. LENALIDOMIDE DR. REDDY^S [Concomitant]
     Dosage: 5 MILLIGRAM, QD (FOR 14 DAYS ON, 7 DAYS OFF OF EACH 21 DAY CYCLE)
     Route: 048
     Dates: start: 20250206
  14. LENALIDOMIDE DR. REDDY^S [Concomitant]
     Dosage: 5 MILLIGRAM, QD (FOR 14 DAYS ON, 7 DAYS OFF OF EACH 21 DAY CYCLE)
     Route: 048
     Dates: start: 20050204
  15. GLIPIZIDE [Concomitant]
     Active Substance: GLIPIZIDE
     Indication: Product used for unknown indication
     Route: 048
  16. JANUVIA [Concomitant]
     Active Substance: SITAGLIPTIN PHOSPHATE
     Indication: Product used for unknown indication
     Route: 048
  17. LOSARTAN POTASSIUM [Concomitant]
     Active Substance: LOSARTAN POTASSIUM
     Indication: Product used for unknown indication
     Route: 065
  18. MAGNESIUM OXIDE [Concomitant]
     Active Substance: MAGNESIUM OXIDE
     Indication: Product used for unknown indication
     Route: 065
  19. ZINC [Concomitant]
     Active Substance: ZINC
     Indication: Product used for unknown indication
     Route: 065
  20. HYDROCHLOROTHIAZIDE [Concomitant]
     Active Substance: HYDROCHLOROTHIAZIDE
     Indication: Product used for unknown indication
     Route: 065
  21. PIOGLITAZONE HCL AND METFORMIN HCL [Concomitant]
     Active Substance: METFORMIN HYDROCHLORIDE\PIOGLITAZONE HYDROCHLORIDE
     Indication: Product used for unknown indication
     Route: 065
  22. ASPIRIN [Concomitant]
     Active Substance: ASPIRIN
     Indication: Product used for unknown indication
     Route: 048
  23. DEXAMETHASONE [Concomitant]
     Active Substance: DEXAMETHASONE
     Indication: Product used for unknown indication
     Route: 048
  24. METFORMIN HYDROCHLORIDE [Concomitant]
     Active Substance: METFORMIN HYDROCHLORIDE
     Indication: Product used for unknown indication
     Route: 065

REACTIONS (2)
  - Muscular weakness [Not Recovered/Not Resolved]
  - Peripheral swelling [Not Recovered/Not Resolved]

NARRATIVE: CASE EVENT DATE: 20250626
